FAERS Safety Report 4985712-3 (Version None)
Quarter: 2006Q2

REPORT INFORMATION
  Report Type: 
  Country: None (occurrence: None)
  Receive Date: 20060428
  Receipt Date: 20050309
  Transmission Date: 20061013
  Serious: No
  Sender: FDA-Public Use
  Company Number: US-GLAXOSMITHKLINE-A0550518A

PATIENT
  Age: 55 Year
  Sex: Female

DRUGS (5)
  1. ZOFRAN [Suspect]
     Route: 048
     Dates: start: 20050201, end: 20050201
  2. REGLAN [Suspect]
  3. SYNTHROID [Concomitant]
  4. TAMOXIFEN CITRATE [Concomitant]
  5. FOSAMAX [Concomitant]

REACTIONS (1)
  - DRUG INEFFECTIVE [None]
